FAERS Safety Report 11499601 (Version 1)
Quarter: 2015Q3

REPORT INFORMATION
  Report Type: Spontaneous
  Country: US (occurrence: None)
  Receive Date: 20150911
  Receipt Date: 20150911
  Transmission Date: 20151125
  Serious: Yes (Death)
  Sender: FDA-Public Use
  Company Number: None

PATIENT
  Age: 56 Year
  Sex: Female
  Weight: 129.6 kg

DRUGS (12)
  1. SOVALDI [Suspect]
     Active Substance: SOFOSBUVIR
     Indication: HEPATITIS C
     Dosage: 400 1 X DAILY ORAL
     Route: 048
     Dates: start: 20150219, end: 20150527
  2. SPIRONOLACTONE. [Concomitant]
     Active Substance: SPIRONOLACTONE
  3. LIDEX [Concomitant]
     Active Substance: FLUOCINONIDE
  4. NOVOLOG [Concomitant]
     Active Substance: INSULIN ASPART
  5. CELEXA [Concomitant]
     Active Substance: CITALOPRAM HYDROBROMIDE
  6. DESONIDE. [Concomitant]
     Active Substance: DESONIDE
  7. ASPIRIN. [Concomitant]
     Active Substance: ASPIRIN
  8. CORGARD [Concomitant]
     Active Substance: NADOLOL
  9. RIBAVIRIN 200 GILEAD SCIENCES, INC. [Suspect]
     Active Substance: RIBAVIRIN
     Indication: HEPATITIS C
     Dosage: 1200 1X DAILY ORAL
     Route: 048
     Dates: start: 20150219, end: 20150527
  10. LASIX [Concomitant]
     Active Substance: FUROSEMIDE
  11. LANTUS [Concomitant]
     Active Substance: INSULIN GLARGINE
  12. PREVACID [Concomitant]
     Active Substance: LANSOPRAZOLE

REACTIONS (1)
  - Hepatic encephalopathy [None]

NARRATIVE: CASE EVENT DATE: 20150527
